FAERS Safety Report 4536543-X (Version None)
Quarter: 2004Q4

REPORT INFORMATION
  Report Type: 
  Country: None (occurrence: None)
  Receive Date: 20041220
  Receipt Date: 20041029
  Transmission Date: 20050328
  Serious: Yes (Hospitalization, Other)
  Sender: FDA-Public Use
  Company Number: 2004079254

PATIENT
  Age: 28 Year
  Sex: Female

DRUGS (16)
  1. GEODON [Suspect]
     Indication: AFFECTIVE DISORDER
     Dosage: 80 MG (2 IN 1 D), ORAL
     Route: 048
     Dates: start: 20010430, end: 20031012
  2. FLUCONAZOLE [Suspect]
     Indication: CANDIDIASIS
     Dosage: 100 MG (1 IN 1 D), ORAL
     Route: 048
     Dates: start: 20031001, end: 20031013
  3. LITHIUM CARBONATE [Suspect]
     Indication: ILL-DEFINED DISORDER
     Dates: start: 20010101
  4. ESCITALOPRAM (ESCITALOPRAM) [Suspect]
     Indication: ILL-DEFINED DISORDER
     Dosage: 15 MG, 1 IN 1 D, ORAL
     Route: 048
     Dates: start: 20010101
  5. TOPIRAMATE [Suspect]
     Indication: ILL-DEFINED DISORDER
     Dosage: 100 MG, 1 IN 1 D, ORAL
     Route: 048
     Dates: start: 20010101
  6. LORATADINE [Suspect]
     Indication: ILL-DEFINED DISORDER
     Dosage: 10 MG, 1 IN 1 D, ORAL
     Route: 048
     Dates: start: 20010101
  7. LANSOPRAZOLE [Concomitant]
  8. ALL OTHER THERAPEUTIC PRODUCTS (ALL OTHER THERAPEUTIC PRODUCTS) [Concomitant]
  9. CLONAZEPAM [Concomitant]
  10. OLANZAPINE [Concomitant]
  11. LEVETIRACETAM [Concomitant]
  12. CIPROFLOXACIN [Concomitant]
  13. TRAZODONE (TRAZODONE) [Concomitant]
  14. METOPROLOL TARTRATE [Concomitant]
  15. LEVOTHYROXINE SODIUM [Concomitant]
  16. PREDNISONE [Concomitant]

REACTIONS (14)
  - AGITATION [None]
  - ANAEMIA [None]
  - BLOOD MAGNESIUM DECREASED [None]
  - BLOOD POTASSIUM DECREASED [None]
  - BRADYCARDIA [None]
  - CANDIDURIA [None]
  - ELECTROCARDIOGRAM QT CORRECTED INTERVAL PROLONGED [None]
  - ELECTROLYTE IMBALANCE [None]
  - MYOCARDIAL INFARCTION [None]
  - MYOCARDIAL ISCHAEMIA [None]
  - THERAPEUTIC AGENT TOXICITY [None]
  - TORSADE DE POINTES [None]
  - URINARY TRACT INFECTION [None]
  - VENTRICULAR TACHYCARDIA [None]
